FAERS Safety Report 7385382-3 (Version None)
Quarter: 2011Q1

REPORT INFORMATION
  Report Type: 
  Country: None (occurrence: None)
  Receive Date: 20110330
  Receipt Date: 20101217
  Transmission Date: 20110831
  Serious: No
  Sender: FDA-Public Use
  Company Number: US-MYLANLABS-2010S1023471

PATIENT

DRUGS (1)
  1. EMSAM [Suspect]
     Dates: start: 20080101

REACTIONS (3)
  - ARTHRALGIA [None]
  - PAIN [None]
  - MYALGIA [None]
